FAERS Safety Report 16660389 (Version 1)
Quarter: 2019Q3

REPORT INFORMATION
  Report Type: Spontaneous
  Country: US (occurrence: US)
  Receive Date: 20190801
  Receipt Date: 20190801
  Transmission Date: 20191004
  Serious: Yes (Hospitalization)
  Sender: FDA-Public Use
  Company Number: None

PATIENT
  Age: 60 Year
  Sex: Male

DRUGS (14)
  1. DULOXETINE CAP 60 MG [Concomitant]
  2. HYDROCHLOROT CAP 12.5 MG [Concomitant]
  3. ONE TOUCH MIS LANCETS [Concomitant]
  4. METOPROL SUC TAB 50 MG ER [Concomitant]
  5. MAGNESIUM OX TAB 400 MG [Concomitant]
  6. MONTELUKAST TAB 10 MG [Concomitant]
  7. HUMALOG KWIK INJ 100/ML [Concomitant]
  8. PREDNISONE TAB 10 MG [Concomitant]
  9. CIMZIA [Suspect]
     Active Substance: CERTOLIZUMAB PEGOL
     Indication: PRODUCT USED FOR UNKNOWN INDICATION
     Dosage: ?          OTHER FREQUENCY:MONTHLY;?
     Route: 058
     Dates: start: 20180128
  10. CETIRAZINE TAB 10 MG [Concomitant]
  11. CLONIDINE TAB 0.2 MG [Concomitant]
  12. DOXYCYCL HYC TAB 100 MG DR [Concomitant]
  13. BREO ELLIPTA INH 100-25 [Concomitant]
  14. OXYCOD/APAP TAB 5-325 MG [Concomitant]

REACTIONS (2)
  - Infection [None]
  - Therapy cessation [None]
